FAERS Safety Report 6496727-0 (Version None)
Quarter: 2009Q4

REPORT INFORMATION
  Report Type: 
  Country: None (occurrence: None)
  Receive Date: 20091211
  Receipt Date: 20091201
  Transmission Date: 20100525
  Serious: Yes (Death, Life-Threatening, Hospitalization)
  Sender: FDA-Public Use
  Company Number: 009

PATIENT
  Age: 48 Year
  Sex: Female
  Weight: 59.8748 kg

DRUGS (13)
  1. FAZACLO 100 MG AZUR PHARMA [Suspect]
     Indication: SCHIZOPHRENIA
     Dosage: 400 MG PO DAILY
     Route: 048
     Dates: start: 20050201, end: 20050501
  2. CHEMOTHERAPY [Concomitant]
  3. LEVOTHYROXINE SODIUM [Concomitant]
  4. ARANESP [Concomitant]
  5. SENOKOT [Concomitant]
  6. MGOXIDE [Concomitant]
  7. MS CONTIN [Concomitant]
  8. PREVACID [Concomitant]
  9. DEPAKOTE [Concomitant]
  10. NEURONTIN [Concomitant]
  11. LACTULOSE [Concomitant]
  12. ATIVAN [Concomitant]
  13. AMBIEN [Concomitant]

REACTIONS (2)
  - DEVICE RELATED INFECTION [None]
  - LUNG NEOPLASM MALIGNANT [None]
